FAERS Safety Report 10505610 (Version 1)
Quarter: 2014Q4

REPORT INFORMATION
  Report Type: Spontaneous
  Country: FR (occurrence: FR)
  Receive Date: 20141008
  Receipt Date: 20141008
  Transmission Date: 20150528
  Serious: Yes (Hospitalization, Other)
  Sender: FDA-Public Use
  Company Number: FR-PFIZER INC-2014272057

PATIENT
  Age: 67 Year
  Sex: Male
  Weight: 84 kg

DRUGS (9)
  1. ZITHROMAX [Suspect]
     Active Substance: AZITHROMYCIN DIHYDRATE
     Dosage: 1 INTAKE DAILY
     Route: 048
     Dates: end: 20140618
  2. MYCOSTER [Suspect]
     Active Substance: CICLOPIROX\CICLOPIROX OLAMINE
     Dosage: 1 DF, 2X/DAY
     Route: 003
     Dates: end: 20140701
  3. COLCHICINE OPOCALIUM [Interacting]
     Active Substance: COLCHICINE
     Indication: GOUT
     Dosage: 1 MG, DAILY
     Route: 048
     Dates: start: 20140615, end: 20140619
  4. ISOPTIN [Suspect]
     Active Substance: VERAPAMIL HYDROCHLORIDE
     Indication: ATRIAL FIBRILLATION
     Dosage: 120 MG, 2X/DAY
     Route: 048
     Dates: start: 20140620, end: 20140624
  5. ADENURIC [Concomitant]
     Active Substance: FEBUXOSTAT
     Indication: HYPERURICAEMIA
     Dosage: 80 MG, DAILY
     Dates: start: 201404, end: 201405
  6. AMYCOR [Interacting]
     Active Substance: BIFONAZOLE
     Dosage: 2 APPLICATIONS DAILY
  7. SPIRIVA [Concomitant]
     Active Substance: TIOTROPIUM BROMIDE MONOHYDRATE
     Dosage: UNK
  8. COLCHICINE OPOCALIUM [Interacting]
     Active Substance: COLCHICINE
     Dosage: 1 MG, 2X/DAY
     Route: 048
     Dates: start: 20140620, end: 20140620
  9. ADENURIC [Concomitant]
     Active Substance: FEBUXOSTAT
     Dosage: 120 MG, DAILY
     Dates: start: 201405

REACTIONS (2)
  - Mixed liver injury [Recovering/Resolving]
  - Drug interaction [Recovering/Resolving]

NARRATIVE: CASE EVENT DATE: 20140618
